FAERS Safety Report 19996836 (Version 1)
Quarter: 2021Q4

REPORT INFORMATION
  Report Type: Spontaneous
  Country: CA (occurrence: CA)
  Receive Date: 20211025
  Receipt Date: 20211025
  Transmission Date: 20220303
  Serious: Yes (Life-Threatening, Hospitalization, Disabling, Other)
  Sender: FDA-Public Use
  Company Number: CA-BOEHRINGERINGELHEIM-2021-BI-134280

PATIENT
  Age: 69 Year
  Sex: Male
  Weight: 99.79 kg

DRUGS (6)
  1. JARDIANCE [Suspect]
     Active Substance: EMPAGLIFLOZIN
     Indication: Diabetes mellitus
     Route: 048
  2. GLICLAZIDE [Concomitant]
     Active Substance: GLICLAZIDE
     Indication: Product used for unknown indication
  3. ELIQUIS [Concomitant]
     Active Substance: APIXABAN
     Indication: Product used for unknown indication
  4. LEVEMIR [Concomitant]
     Active Substance: INSULIN DETEMIR
     Indication: Product used for unknown indication
  5. METFORMIN [Concomitant]
     Active Substance: METFORMIN HYDROCHLORIDE
     Indication: Product used for unknown indication
  6. VICTOZA [Concomitant]
     Active Substance: LIRAGLUTIDE
     Indication: Product used for unknown indication
     Dosage: MULTIDOSEPEN-INJECTOR.30DOSES(0.6MG)-15DOSES(1.2MG)-10DOSES(1.8MG). 1/2/3

REACTIONS (32)
  - Acute myocardial infarction [Unknown]
  - Coma [Unknown]
  - Paralysis [Unknown]
  - Anion gap [Unknown]
  - Asthenia [Unknown]
  - Confusional state [Unknown]
  - Dysphonia [Unknown]
  - Dyspnoea [Unknown]
  - Erythema [Unknown]
  - Euglycaemic diabetic ketoacidosis [Unknown]
  - Hyperventilation [Unknown]
  - Hypoglycaemia [Unknown]
  - Hypophagia [Unknown]
  - Intensive care unit acquired weakness [Unknown]
  - Labelled drug-food interaction medication error [Unknown]
  - Loss of consciousness [Unknown]
  - Metabolic acidosis [Unknown]
  - Micturition urgency [Unknown]
  - Mobility decreased [Unknown]
  - Nausea [Unknown]
  - Neck pain [Unknown]
  - Odynophagia [Unknown]
  - Oropharyngeal pain [Unknown]
  - Pharyngitis streptococcal [Unknown]
  - Pollakiuria [Unknown]
  - Polyneuropathy [Unknown]
  - Pyrexia [Unknown]
  - Somnolence [Unknown]
  - Speech disorder [Unknown]
  - Starvation ketoacidosis [Unknown]
  - Swelling [Unknown]
  - Visual impairment [Unknown]
